FAERS Safety Report 5674601-7 (Version None)
Quarter: 2008Q2

REPORT INFORMATION
  Report Type: 
  Country: None (occurrence: None)
  Receive Date: 20080303
  Receipt Date: 20070213
  Transmission Date: 20081010
  Serious: Yes (Other)
  Sender: FDA-Public Use
  Company Number: MK-6030277

PATIENT
  Age: 17 Year
  Sex: Male
  Weight: 63.56 kg

DRUGS (4)
  1. AMNESTEEM [Suspect]
     Indication: ACNE
     Dosage: 40 MG;NULL_1 DAY;ORAL; 80 MG;NULL_1_DAY;ORAL; 100 MG;NULL_1_DAY;ORAL
     Route: 048
     Dates: start: 20051129, end: 20060124
  2. AMNESTEEM [Suspect]
     Indication: ACNE
     Dosage: 40 MG;NULL_1 DAY;ORAL; 80 MG;NULL_1_DAY;ORAL; 100 MG;NULL_1_DAY;ORAL
     Route: 048
     Dates: start: 20050927, end: 20060321
  3. AMNESTEEM [Suspect]
     Indication: ACNE
     Dosage: 40 MG;NULL_1 DAY;ORAL; 80 MG;NULL_1_DAY;ORAL; 100 MG;NULL_1_DAY;ORAL
     Route: 048
     Dates: start: 20060125, end: 20060425
  4. DIAMOX SRC [Concomitant]

REACTIONS (2)
  - INTRACRANIAL PRESSURE INCREASED [None]
  - PAPILLOEDEMA [None]
